FAERS Safety Report 6989011-X (Version None)
Quarter: 2010Q3

REPORT INFORMATION
  Report Type: 
  Country: None (occurrence: None)
  Receive Date: 20100916
  Receipt Date: 20091002
  Transmission Date: 20110219
  Serious: Yes (Other)
  Sender: FDA-Public Use
  Company Number: US-PFIZER INC-2009206661

PATIENT
  Sex: Female
  Weight: 82.54 kg

DRUGS (9)
  1. LYRICA [Suspect]
     Indication: FIBROMYALGIA
     Dosage: UNK
     Dates: start: 20070101
  2. HYDROCODONE [Concomitant]
     Dosage: UNK
  3. DIAZEPAM [Concomitant]
     Dosage: UNK
  4. CELEXA [Concomitant]
     Dosage: UNK
  5. PREVACID [Concomitant]
     Dosage: UNK
  6. CLONAZEPAM [Concomitant]
     Dosage: UNK
  7. HYOSCYAMINE [Concomitant]
     Dosage: UNK
  8. SIMVASTATIN [Concomitant]
     Indication: BLOOD CHOLESTEROL INCREASED
     Dosage: UNK
  9. LISINOPRIL [Concomitant]
     Indication: HYPERTENSION
     Dosage: UNK

REACTIONS (17)
  - ABDOMINAL PAIN [None]
  - BILIARY TRACT DISORDER [None]
  - COLD SWEAT [None]
  - COLONIC POLYP [None]
  - CONFUSIONAL STATE [None]
  - GALLBLADDER DISORDER [None]
  - HEPATIC CYST [None]
  - HEPATIC LESION [None]
  - LUNG NEOPLASM [None]
  - MALAISE [None]
  - MEMORY IMPAIRMENT [None]
  - MUSCLE ATROPHY [None]
  - PLEURAL FIBROSIS [None]
  - SOMNOLENCE [None]
  - SPLENIC CYST [None]
  - UTERINE LEIOMYOMA [None]
  - WEIGHT INCREASED [None]
